FAERS Safety Report 23677671 (Version 3)
Quarter: 2024Q4

REPORT INFORMATION
  Report Type: Spontaneous
  Country: US (occurrence: US)
  Receive Date: 20240327
  Receipt Date: 20241213
  Transmission Date: 20250115
  Serious: Yes (Hospitalization, Other)
  Sender: BRISTOL-MYERS SQUIBB COMPANY
  Company Number: US-BRISTOL-MYERS SQUIBB COMPANY-2024-045300

PATIENT
  Age: 61 Year
  Sex: Male

DRUGS (3)
  1. POMALYST [Suspect]
     Active Substance: POMALIDOMIDE
     Indication: Plasma cell myeloma
     Dosage: FREQUENCY: QD
     Route: 048
  2. POMALYST [Suspect]
     Active Substance: POMALIDOMIDE
     Dosage: FREQUENCY: OTHER
     Route: 048
  3. POMALYST [Suspect]
     Active Substance: POMALIDOMIDE
     Dosage: DAILY FOR 21 DAYS, THEN 7 DAYS OFF
     Route: 048

REACTIONS (8)
  - Pneumonia [Unknown]
  - Sinusitis [Not Recovered/Not Resolved]
  - Fatigue [Unknown]
  - Neuralgia [Unknown]
  - Tremor [Unknown]
  - Muscle spasms [Unknown]
  - Cardiac failure congestive [Unknown]
  - Pharyngitis streptococcal [Unknown]
